FAERS Safety Report 10167220 (Version 2)
Quarter: 2014Q2

REPORT INFORMATION
  Report Type: Spontaneous
  Country: FR (occurrence: FR)
  Receive Date: 20140512
  Receipt Date: 20140516
  Transmission Date: 20141212
  Serious: Yes (Hospitalization)
  Sender: FDA-Public Use
  Company Number: FR-JNJFOC-20140420784

PATIENT
  Age: 66 Year
  Sex: Female

DRUGS (8)
  1. RISPERDALORO [Suspect]
     Indication: DEPRESSION
     Route: 048
     Dates: end: 20140404
  2. DEROXAT [Interacting]
     Indication: DEPRESSION
     Route: 048
     Dates: end: 20140404
  3. ZYPREXA [Interacting]
     Indication: DEPRESSION
     Route: 048
     Dates: end: 20140404
  4. TRANXENE [Interacting]
     Indication: DEPRESSION
     Route: 048
     Dates: end: 20140404
  5. TRANXENE [Interacting]
     Indication: DEPRESSION
     Route: 048
  6. TERCIAN [Interacting]
     Indication: DEPRESSION
     Route: 048
     Dates: start: 201403, end: 20140404
  7. STILNOX [Interacting]
     Indication: DEPRESSION
     Route: 048
     Dates: start: 201309, end: 20140404
  8. TRAMADOL [Interacting]
     Indication: PAIN
     Route: 048
     Dates: start: 201403, end: 20140404

REACTIONS (5)
  - Respiratory acidosis [Recovered/Resolved]
  - Somnolence [Recovered/Resolved]
  - Hypoventilation [Recovered/Resolved]
  - Drug interaction [Unknown]
  - Off label use [Unknown]
